FAERS Safety Report 7476121-6 (Version None)
Quarter: 2011Q2

REPORT INFORMATION
  Report Type: 
  Country: None (occurrence: None)
  Receive Date: 20110512
  Receipt Date: 20110506
  Transmission Date: 20111010
  Serious: Yes (Other)
  Sender: FDA-Public Use
  Company Number: FR-PFIZER INC-2011097830

PATIENT
  Age: 68 Year
  Sex: Male

DRUGS (2)
  1. RAMIPRIL [Concomitant]
     Indication: HYPERTENSION
     Dosage: 5 MG, 1X/DAY
     Route: 048
  2. VIAGRA [Suspect]
     Indication: ERECTILE DYSFUNCTION
     Dosage: 50 MG, 1X/DAY
     Route: 048

REACTIONS (1)
  - CEREBROVASCULAR ACCIDENT [None]
